FAERS Safety Report 6064910-4 (Version None)
Quarter: 2009Q1

REPORT INFORMATION
  Report Type: 
  Country: None (occurrence: None)
  Receive Date: 20090204
  Receipt Date: 20090126
  Transmission Date: 20090719
  Serious: Yes (Other)
  Sender: FDA-Public Use
  Company Number: US-JNJFOC-20090107039

PATIENT
  Sex: Female

DRUGS (6)
  1. RISPERDAL [Suspect]
     Indication: BIPOLAR I DISORDER
  2. RISPERDAL [Suspect]
     Indication: SLEEP DISORDER THERAPY
  3. RISPERDAL [Suspect]
     Indication: BIPOLAR DISORDER
  4. SEROQUEL [Suspect]
     Indication: BIPOLAR I DISORDER
  5. SEROQUEL [Suspect]
     Indication: SLEEP DISORDER THERAPY
  6. SEROQUEL [Suspect]
     Indication: BIPOLAR DISORDER

REACTIONS (1)
  - TYPE 2 DIABETES MELLITUS [None]
